FAERS Safety Report 8439638-3 (Version None)
Quarter: 2012Q2

REPORT INFORMATION
  Report Type: 
  Country: None (occurrence: None)
  Receive Date: 20120615
  Receipt Date: 20120612
  Transmission Date: 20120825
  Serious: Yes (Other)
  Sender: FDA-Public Use
  Company Number: CA-PFIZER INC-2012133919

PATIENT
  Age: 88 Year
  Sex: Female

DRUGS (10)
  1. OMEPRAZOLE (PRISOLEC) [Concomitant]
     Dosage: UNK
  2. PREDNISONE [Concomitant]
     Dosage: UNK
  3. ISOSORBIDE DINITRATE [Concomitant]
     Dosage: UNK
  4. AMLODIPINE BESYLATE [Suspect]
     Dosage: 5 MG, 2X/DAY
     Route: 048
     Dates: start: 20100101
  5. ATORVASTATIN [Concomitant]
     Dosage: UNK
  6. MINITRAN [Concomitant]
     Dosage: UNK
  7. IRBESARTAN [Concomitant]
     Dosage: UNK
  8. SYMBICORT [Concomitant]
     Dosage: UNK
  9. ATIVAN [Concomitant]
     Dosage: UNK
  10. PLAVIX [Concomitant]
     Dosage: UNK

REACTIONS (4)
  - COUGH [None]
  - CHOKING [None]
  - THROAT IRRITATION [None]
  - DYSPHAGIA [None]
